FAERS Safety Report 8458505-2 (Version None)
Quarter: 2012Q2

REPORT INFORMATION
  Report Type: 
  Country: None (occurrence: None)
  Receive Date: 20120622
  Receipt Date: 20120611
  Transmission Date: 20120825
  Serious: Yes (Hospitalization)
  Sender: FDA-Public Use
  Company Number: US-ELI_LILLY_AND_COMPANY-US201110001333

PATIENT
  Sex: Female

DRUGS (7)
  1. FORTEO [Suspect]
     Dosage: 20 UG, QD
     Dates: start: 20110915
  2. DIURETICS [Concomitant]
  3. FORTEO [Suspect]
     Dosage: 20 UG, QD
     Route: 058
  4. FORTEO [Suspect]
     Dosage: 20 UG, QD
     Route: 058
  5. FORTEO [Suspect]
     Indication: OSTEOPOROSIS
     Dosage: 20 UG, QD
     Route: 058
     Dates: start: 20110901
  6. PLAVIX [Concomitant]
  7. JANUVIA [Concomitant]
     Dosage: 50 MG, UNK

REACTIONS (25)
  - BODY TEMPERATURE INCREASED [None]
  - TOOTH LOSS [None]
  - BLOOD GLUCOSE DECREASED [None]
  - BLOOD PRESSURE DECREASED [None]
  - BALANCE DISORDER [None]
  - RESPIRATORY TRACT CONGESTION [None]
  - WEIGHT INCREASED [None]
  - TOOTH FRACTURE [None]
  - EAR DISORDER [None]
  - JOINT SWELLING [None]
  - HAEMORRHAGE [None]
  - FALL [None]
  - INJECTION SITE HAEMATOMA [None]
  - DRUG DOSE OMISSION [None]
  - FEELING ABNORMAL [None]
  - MEDICATION ERROR [None]
  - HYPOTENSION [None]
  - SINUS DISORDER [None]
  - CONTUSION [None]
  - INJECTION SITE MASS [None]
  - WAIST CIRCUMFERENCE INCREASED [None]
  - EYE DISORDER [None]
  - LACERATION [None]
  - EPISTAXIS [None]
  - MOBILITY DECREASED [None]
